FAERS Safety Report 8718012 (Version 3)
Quarter: 2012Q4

REPORT INFORMATION
  Report Type: Report from Study
  Country: US (occurrence: US)
  Receive Date: 20120810
  Receipt Date: 20121204
  Transmission Date: 20130627
  Serious: Yes (Other)
  Sender: FDA-Public Use
  Company Number: US-ABBOTT-12P-163-0965596-00

PATIENT
  Sex: Female
  Weight: 101.7 kg

DRUGS (1)
  1. HUMIRA 40 MG/ 0.8 ML PRE-FILLED SYRINGE [Suspect]
     Indication: RHEUMATOID ARTHRITIS
     Route: 058
     Dates: start: 2006, end: 20120619

REACTIONS (3)
  - Peripheral arterial occlusive disease [Unknown]
  - Impaired healing [Unknown]
  - Arthritis [Unknown]
